FAERS Safety Report 20942391 (Version 1)
Quarter: 2022Q2

REPORT INFORMATION
  Report Type: Report from Study
  Country: US (occurrence: US)
  Receive Date: 20220610
  Receipt Date: 20220610
  Transmission Date: 20220721
  Serious: Yes (Other)
  Sender: FDA-Public Use
  Company Number: US-CELGENE-USA-20220201128

PATIENT
  Age: 47 Year
  Sex: Male
  Weight: 79.38 kg

DRUGS (1)
  1. REVLIMID [Suspect]
     Active Substance: LENALIDOMIDE
     Indication: Plasma cell myeloma
     Dosage: EXPIRY DATE: 30-APR-2021 FOR BATCH NUMBER A3569A
     Route: 048
     Dates: start: 202112

REACTIONS (2)
  - Oropharyngeal pain [Unknown]
  - Candida infection [Unknown]
